FAERS Safety Report 10364308 (Version 2)
Quarter: 2014Q3

REPORT INFORMATION
  Report Type: Spontaneous
  Country: US (occurrence: US)
  Receive Date: 20140806
  Receipt Date: 20140826
  Transmission Date: 20150326
  Serious: Yes (Other)
  Sender: FDA-Public Use
  Company Number: US-AMGEN-USASP2014057764

PATIENT
  Age: 89 Year
  Sex: Female

DRUGS (1)
  1. PROLIA [Suspect]
     Active Substance: DENOSUMAB
     Indication: OSTEOPOROSIS POSTMENOPAUSAL
     Dosage: UNK
     Route: 065
     Dates: start: 201307

REACTIONS (10)
  - Burning sensation [Unknown]
  - Vein disorder [Unknown]
  - Arthralgia [Unknown]
  - Pain in extremity [Unknown]
  - Feeling hot [Unknown]
  - Abasia [Unknown]
  - Wound [Unknown]
  - Mobility decreased [Unknown]
  - Fall [Unknown]
  - Frustration [Unknown]
